FAERS Safety Report 5669471-7 (Version None)
Quarter: 2008Q1

REPORT INFORMATION
  Report Type: 
  Country: None (occurrence: None)
  Receive Date: 20080312
  Receipt Date: 20080312
  Transmission Date: 20080703
  Serious: No
  Sender: FDA-Public Use
  Company Number: None

PATIENT
  Sex: Female

DRUGS (1)
  1. TERBINAFINE 250 MG RANBAXY [Suspect]
     Dosage: 250MG DAILY PO
     Route: 048
     Dates: start: 20071210, end: 20080130

REACTIONS (1)
  - AGEUSIA [None]
